FAERS Safety Report 11681105 (Version 2)
Quarter: 2015Q4

REPORT INFORMATION
  Report Type: Spontaneous
  Country: US (occurrence: US)
  Receive Date: 20151027
  Receipt Date: 20151104
  Transmission Date: 20160304
  Serious: No
  Sender: FDA-Public Use
  Company Number: US-ELI_LILLY_AND_COMPANY-US201008005371

PATIENT
  Age: 66 Year
  Sex: Female

DRUGS (7)
  1. FORTEO [Suspect]
     Active Substance: TERIPARATIDE
     Dosage: 20 UG, DAILY (1/D)
  2. FORTEO [Suspect]
     Active Substance: TERIPARATIDE
     Dosage: 20 UG, DAILY (1/D)
  3. FORTEO [Suspect]
     Active Substance: TERIPARATIDE
     Indication: OSTEOPOROSIS
     Dosage: 20 UG, DAILY (1/D)
     Dates: start: 201008
  4. FORTEO [Suspect]
     Active Substance: TERIPARATIDE
     Dosage: 20 UG, DAILY (1/D)
  5. FORTEO [Suspect]
     Active Substance: TERIPARATIDE
     Dosage: 20 UG, DAILY (1/D)
  6. FORTEO [Suspect]
     Active Substance: TERIPARATIDE
     Dosage: 20 UG, DAILY (1/D)
  7. FORTEO [Suspect]
     Active Substance: TERIPARATIDE
     Dosage: 20 UG, QD

REACTIONS (38)
  - Abdominal pain [Unknown]
  - Erythema [Unknown]
  - Pain [Unknown]
  - Feeling cold [Unknown]
  - Chills [Unknown]
  - Musculoskeletal stiffness [Unknown]
  - Joint swelling [Unknown]
  - Injection site haemorrhage [Not Recovered/Not Resolved]
  - Diarrhoea [Unknown]
  - Injection site bruising [Not Recovered/Not Resolved]
  - Fall [Unknown]
  - Injection site erythema [Not Recovered/Not Resolved]
  - Injection site discolouration [Unknown]
  - Injection site pain [Unknown]
  - Flatulence [Not Recovered/Not Resolved]
  - Wrong technique in product usage process [Unknown]
  - Dyspepsia [Not Recovered/Not Resolved]
  - Dysgeusia [Not Recovered/Not Resolved]
  - Movement disorder [Unknown]
  - Abdominal discomfort [Unknown]
  - Incorrect product storage [Unknown]
  - Injection site swelling [Unknown]
  - Headache [Unknown]
  - Dizziness [Unknown]
  - Nausea [Unknown]
  - Abdominal pain upper [Unknown]
  - Chest pain [Unknown]
  - Myalgia [Unknown]
  - Skin burning sensation [Unknown]
  - Decreased appetite [Not Recovered/Not Resolved]
  - Malaise [Unknown]
  - Incorrect product storage [Unknown]
  - Atrioventricular block [Unknown]
  - Feeling hot [Unknown]
  - Discomfort [Unknown]
  - Fatigue [Unknown]
  - Incorrect dose administered [Unknown]
  - Muscle spasms [Unknown]

NARRATIVE: CASE EVENT DATE: 20100817
